FAERS Safety Report 24850149 (Version 1)
Quarter: 2025Q1

REPORT INFORMATION
  Report Type: Spontaneous
  Country: US (occurrence: US)
  Receive Date: 20250116
  Receipt Date: 20250116
  Transmission Date: 20250408
  Serious: No
  Sender: INCYTE
  Company Number: US-EVENT-001161

PATIENT

DRUGS (2)
  1. JAKAFI [Suspect]
     Active Substance: RUXOLITINIB
     Dosage: 5 MILLIGRAM, BID, 5 MG BY MOUTH TWICE A DAY FOR ONE WEEK AND THEN BACK TO 10MG TWICE A DAY
     Route: 048
  2. JAKAFI [Suspect]
     Active Substance: RUXOLITINIB
     Dosage: 5 MILLIGRAM, BID, 5 MG BY MOUTH TWICE A DAY FOR ONE WEEK AND THEN BACK TO 10MG TWICE A DAY
     Route: 048

REACTIONS (1)
  - Wrong technique in product usage process [Unknown]
